FAERS Safety Report 19584171 (Version 1)
Quarter: 2021Q3

REPORT INFORMATION
  Report Type: Spontaneous
  Country: IN (occurrence: IN)
  Receive Date: 20210720
  Receipt Date: 20210720
  Transmission Date: 20211014
  Serious: Yes (Hospitalization)
  Sender: FDA-Public Use
  Company Number: IN-MYLANLABS-2021M1043413

PATIENT
  Age: 6 Day
  Sex: Male

DRUGS (2)
  1. HEPARIN [Suspect]
     Active Substance: HEPARIN SODIUM
     Indication: ANTICOAGULANT THERAPY
     Dosage: 30 INTERNATIONAL UNIT/KILOGRAM, QH
     Route: 042
  2. HEPARIN [Suspect]
     Active Substance: HEPARIN SODIUM
     Indication: PERIPHERAL ISCHAEMIA
     Dosage: 25 INTERNATIONAL UNIT/KILOGRAM, QH
     Route: 042

REACTIONS (2)
  - Heparin-induced thrombocytopenia [Recovered/Resolved]
  - Drug ineffective [Unknown]
